FAERS Safety Report 6316873-1 (Version None)
Quarter: 2009Q3

REPORT INFORMATION
  Report Type: 
  Country: None (occurrence: None)
  Receive Date: 20090820
  Receipt Date: 20090810
  Transmission Date: 20100115
  Serious: Yes (Other)
  Sender: FDA-Public Use
  Company Number: US-ELI_LILLY_AND_COMPANY-US200908002121

PATIENT
  Sex: Male

DRUGS (3)
  1. STRATTERA [Suspect]
     Indication: ATTENTION DEFICIT/HYPERACTIVITY DISORDER
     Dosage: 40 MG, DAILY (1/D)
     Route: 065
     Dates: start: 20060101
  2. STRATTERA [Suspect]
     Dosage: UNK, DAILY (1/D)
     Route: 065
  3. RITALIN [Concomitant]
     Dosage: UNK, UNKNOWN
     Route: 065

REACTIONS (3)
  - FALL [None]
  - NERVE INJURY [None]
  - NEURALGIA [None]
